FAERS Safety Report 22206172 (Version 1)
Quarter: 2023Q2

REPORT INFORMATION
  Report Type: Spontaneous
  Country: US (occurrence: None)
  Receive Date: 20230412
  Receipt Date: 20230412
  Transmission Date: 20230722
  Serious: Yes (Hospitalization)
  Sender: FDA-Public Use
  Company Number: None

PATIENT
  Age: 20 Year
  Sex: Female

DRUGS (1)
  1. ENVARSUS XR [Suspect]
     Active Substance: TACROLIMUS
     Dosage: FREQUENCY : DAILY;?
     Route: 048

REACTIONS (10)
  - Hypertension [None]
  - Oedema [None]
  - Hypoalbuminaemia [None]
  - Metabolic acidosis [None]
  - Normocytic anaemia [None]
  - Complement factor decreased [None]
  - Proteinuria [None]
  - Haematuria [None]
  - Treatment failure [None]
  - Blood creatinine increased [None]

NARRATIVE: CASE EVENT DATE: 20230327
